FAERS Safety Report 4663846-0 (Version None)
Quarter: 2005Q2

REPORT INFORMATION
  Report Type: 
  Country: None (occurrence: None)
  Receive Date: 20050516
  Receipt Date: 20050503
  Transmission Date: 20051028
  Serious: Yes (Hospitalization)
  Sender: FDA-Public Use
  Company Number: 2005069292

PATIENT
  Sex: Female

DRUGS (1)
  1. VFEND [Suspect]
     Indication: BRONCHOPULMONARY ASPERGILLOSIS
     Dosage: 400 MG (200 MG, BID), ORAL
     Route: 048

REACTIONS (3)
  - MOVEMENT DISORDER [None]
  - NEUROLOGICAL SYMPTOM [None]
  - UNEVALUABLE EVENT [None]
